FAERS Safety Report 19503506 (Version 1)
Quarter: 2021Q3

REPORT INFORMATION
  Report Type: Spontaneous
  Country: US (occurrence: US)
  Receive Date: 20210707
  Receipt Date: 20210707
  Transmission Date: 20211014
  Serious: No
  Sender: FDA-Public Use
  Company Number: US-BIODELIVERY SCIENCES INTERNATIONAL-2021BDSI0108

PATIENT
  Age: 62 Year
  Sex: Male
  Weight: 104.42 kg

DRUGS (2)
  1. HYDROCODONE [Concomitant]
     Active Substance: HYDROCODONE
     Indication: PAIN
     Dosage: UNKNOWN; UNKNOWN
     Route: 065
  2. BUPRENORPHINE. [Suspect]
     Active Substance: BUPRENORPHINE
     Indication: PAIN
     Route: 002
     Dates: start: 2020

REACTIONS (7)
  - Wrong technique in product usage process [Not Recovered/Not Resolved]
  - Product solubility abnormal [Unknown]
  - Product packaging difficult to open [Unknown]
  - Dry mouth [Not Recovered/Not Resolved]
  - Incorrect route of product administration [Recovered/Resolved]
  - Product adhesion issue [Unknown]
  - Product primary packaging issue [Unknown]

NARRATIVE: CASE EVENT DATE: 2020
